FAERS Safety Report 7487150-0 (Version None)
Quarter: 2011Q2

REPORT INFORMATION
  Report Type: 
  Country: None (occurrence: None)
  Receive Date: 20110518
  Receipt Date: 20110504
  Transmission Date: 20111010
  Serious: No
  Sender: FDA-Public Use
  Company Number: BR-RANBAXY-2010R5-39087

PATIENT

DRUGS (6)
  1. MACRODANTINA [Concomitant]
     Indication: URINARY TRACT INFECTION
     Dosage: 100 MG, BID
     Route: 065
     Dates: start: 20100830, end: 20100909
  2. METRONIDAZOLE [Concomitant]
     Indication: URINARY TRACT INFECTION
     Dosage: 50 MG
     Route: 065
     Dates: start: 20100830, end: 20100913
  3. FOLIC ACID [Concomitant]
     Indication: PRODUCT USED FOR UNKNOWN INDICATION
     Dosage: UNK
     Route: 065
  4. FERROUS SULFATE TAB [Concomitant]
     Indication: PRODUCT USED FOR UNKNOWN INDICATION
     Dosage: UNK
     Route: 065
  5. UNI HIOSCIN [Concomitant]
     Indication: URINARY TRACT INFECTION
     Dosage: 10 MG, QID
     Route: 065
     Dates: start: 20100830, end: 20100904
  6. CEPHALEXIN [Suspect]
     Indication: URINARY TRACT INFECTION
     Dosage: 500 MG, QID
     Route: 048
     Dates: start: 20100815, end: 20101020

REACTIONS (5)
  - URINE COLOUR ABNORMAL [None]
  - NAUSEA [None]
  - DIZZINESS [None]
  - DRUG EXPOSURE DURING PREGNANCY [None]
  - HEADACHE [None]
